FAERS Safety Report 8958753 (Version 1)
Quarter: 2012Q4

REPORT INFORMATION
  Report Type: 
  Country: US (occurrence: None)
  Receive Date: 20121206
  Receipt Date: 20121206
  Transmission Date: 20130627
  Serious: No
  Sender: FDA-Public Use
  Company Number: None

PATIENT
  Sex: Male
  Weight: 121.7 kg

DRUGS (1)
  1. ALFA 2 INTERFERON 2B (INTRON-A) [Suspect]
     Dosage: 204 million IU
     Dates: end: 20110901

REACTIONS (5)
  - Neutrophil count decreased [None]
  - White blood cell count decreased [None]
  - Cognitive disorder [None]
  - Disturbance in attention [None]
  - Impaired work ability [None]
